FAERS Safety Report 13860451 (Version 3)
Quarter: 2018Q4

REPORT INFORMATION
  Report Type: Report from Study
  Country: None (occurrence: US)
  Receive Date: 20170811
  Receipt Date: 20181130
  Transmission Date: 20190204
  Serious: Yes (Hospitalization, Other)
  Sender: FDA-Public Use
  Company Number: US-ABBVIE-17P-163-2061250-00

PATIENT
  Age: 67 Year
  Sex: Female

DRUGS (19)
  1. RYTARY 36.25/145MG [Concomitant]
     Dosage: 145/580 MG, QHS
     Route: 048
     Dates: start: 20150404
  2. MELATONIN [Concomitant]
     Active Substance: MELATONIN
     Indication: RAPID EYE MOVEMENTS SLEEP ABNORMAL
     Route: 048
     Dates: start: 201604
  3. AMANTADINE. [Concomitant]
     Active Substance: AMANTADINE HYDROCHLORIDE
     Indication: PARKINSON^S DISEASE
     Route: 048
     Dates: start: 20111109, end: 201604
  4. PROBIOTIC FORMULA CAPSULE [Concomitant]
     Indication: ROUTINE HEALTH MAINTENANCE
     Route: 048
     Dates: start: 201604, end: 201612
  5. DUOPA [Suspect]
     Active Substance: CARBIDOPA\LEVODOPA
     Indication: PARKINSON^S DISEASE
     Dosage: TITRATION
     Route: 050
     Dates: start: 20160404, end: 20160407
  6. HYDROCHLOROTHIAZIDE W/LOSARTAN [Concomitant]
     Active Substance: HYDROCHLOROTHIAZIDE\LOSARTAN
     Indication: HYPERTENSION
     Dosage: 25/100 MILLIGRAM
     Route: 048
     Dates: start: 199604
  7. ATENOLOL. [Concomitant]
     Active Substance: ATENOLOL
     Indication: HYPERTENSION
     Route: 048
     Dates: start: 199604
  8. DUOPA [Suspect]
     Active Substance: CARBIDOPA\LEVODOPA
     Dosage: TITRATION
     Route: 050
     Dates: start: 20160407
  9. PRAMIPEXOLE. [Concomitant]
     Active Substance: PRAMIPEXOLE
     Indication: PARKINSON^S DISEASE
     Route: 048
     Dates: start: 20111109, end: 20160405
  10. PRAMIPEXOLE. [Concomitant]
     Active Substance: PRAMIPEXOLE
     Dosage: AT BEDTIME
     Route: 048
     Dates: start: 20160406, end: 20170525
  11. ARICEPT ACL [Concomitant]
     Indication: DEPRESSION
     Dosage: AT BEDTIME
     Route: 048
     Dates: start: 201503
  12. CLONAZEPAM. [Concomitant]
     Active Substance: CLONAZEPAM
     Indication: RAPID EYE MOVEMENTS SLEEP ABNORMAL
     Dosage: AT BEDTIME
     Route: 048
     Dates: start: 20120321
  13. DULCOLAX NOS [Concomitant]
     Active Substance: BISACODYL OR DOCUSATE SODIUM
     Indication: CONSTIPATION
     Route: 048
     Dates: start: 201301
  14. RYTARY 36.25/145MG [Concomitant]
     Indication: PARKINSON^S DISEASE
     Dosage: 145/580 MG
     Route: 048
     Dates: start: 20151110, end: 20160403
  15. CITALOPRAM [Concomitant]
     Active Substance: CITALOPRAM HYDROBROMIDE
     Indication: DEPRESSION
     Route: 048
     Dates: start: 20130521
  16. CYCLOBENZAPRINE. [Concomitant]
     Active Substance: CYCLOBENZAPRINE
     Indication: RAPID EYE MOVEMENTS SLEEP ABNORMAL
     Route: 048
     Dates: start: 2015, end: 20170917
  17. PARCOPA 25/100MG [Concomitant]
     Indication: PARKINSON^S DISEASE
     Dosage: 12.5/50 MG
     Route: 060
     Dates: start: 2009
  18. TYLENOL EXTRA STRENGTH [Concomitant]
     Active Substance: ACETAMINOPHEN
     Indication: PAIN
     Route: 048
     Dates: start: 2000
  19. HYDRAZALINE [Concomitant]
     Indication: HYPERTENSION
     Route: 048
     Dates: start: 20160929, end: 20170814

REACTIONS (2)
  - Lumbar spinal stenosis [Recovered/Resolved]
  - Intervertebral disc protrusion [Recovered/Resolved]

NARRATIVE: CASE EVENT DATE: 20160918
